FAERS Safety Report 18277151 (Version 1)
Quarter: 2020Q3

REPORT INFORMATION
  Report Type: Spontaneous
  Country: US (occurrence: US)
  Receive Date: 20200917
  Receipt Date: 20200917
  Transmission Date: 20201103
  Serious: No
  Sender: FDA-Public Use
  Company Number: US-ALLERGAN-1941940US

PATIENT
  Age: 67 Year
  Sex: Male

DRUGS (1)
  1. CARAFATE [Suspect]
     Active Substance: SUCRALFATE
     Indication: OESOPHAGEAL DISCOMFORT
     Dosage: 10 ML, QID

REACTIONS (3)
  - Malaise [Recovered/Resolved]
  - Product taste abnormal [Unknown]
  - Gastrointestinal tract irritation [Recovered/Resolved]
